FAERS Safety Report 25501940 (Version 1)
Quarter: 2025Q3

REPORT INFORMATION
  Report Type: Spontaneous
  Country: JP (occurrence: JP)
  Receive Date: 20250702
  Receipt Date: 20250702
  Transmission Date: 20251020
  Serious: Yes (Life-Threatening, Hospitalization, Other)
  Sender: AMGEN
  Company Number: JP-AMGEN-JPNSP2025126212

PATIENT
  Age: 54 Year
  Sex: Female

DRUGS (1)
  1. FILGRASTIM [Suspect]
     Active Substance: FILGRASTIM
     Indication: Neutropenia
     Dosage: 75 MICROGRAM, QD (DAY 1, CONTINUED FOR TOTAL OF 3 DAYS)
     Route: 058

REACTIONS (1)
  - Progressive multifocal leukoencephalopathy [Unknown]
